FAERS Safety Report 8860526 (Version 1)
Quarter: 2012Q4

REPORT INFORMATION
  Report Type: 
  Country: JP (occurrence: JP)
  Receive Date: 20121025
  Receipt Date: 20121025
  Transmission Date: 20130627
  Serious: Yes (Other)
  Sender: FDA-Public Use
  Company Number: JP-ASTELLAS-2012JP009931

PATIENT
  Age: 77 Year
  Sex: Male

DRUGS (2)
  1. BETANIS [Suspect]
     Route: 048
  2. URIEF [Suspect]
     Route: 048

REACTIONS (1)
  - Cerebral infarction [Unknown]
